FAERS Safety Report 17557050 (Version 1)
Quarter: 2020Q1

REPORT INFORMATION
  Report Type: Spontaneous
  Country: CA (occurrence: CA)
  Receive Date: 20200318
  Receipt Date: 20200318
  Transmission Date: 20200409
  Serious: Yes (Death, Other)
  Sender: FDA-Public Use
  Company Number: CA-BRISTOL-MYERS SQUIBB COMPANY-BMS-2020-023023

PATIENT
  Sex: Female

DRUGS (1)
  1. IPILIMUMAB [Suspect]
     Active Substance: IPILIMUMAB
     Indication: MALIGNANT MELANOMA
     Dosage: UNAVAILABLE
     Route: 065

REACTIONS (7)
  - Chorea [Fatal]
  - Delirium [Fatal]
  - Ataxia [Fatal]
  - Cognitive disorder [Fatal]
  - Confusional state [Fatal]
  - Colitis [Recovering/Resolving]
  - Rash [Recovering/Resolving]
